FAERS Safety Report 16997770 (Version 1)
Quarter: 2019Q4

REPORT INFORMATION
  Report Type: Spontaneous
  Country: CA (occurrence: CA)
  Receive Date: 20191106
  Receipt Date: 20191106
  Transmission Date: 20200122
  Serious: Yes (Hospitalization, Other)
  Sender: FDA-Public Use
  Company Number: CA-TEVA-2019-CA-1130878

PATIENT
  Age: 53 Year
  Sex: Male

DRUGS (17)
  1. MYCOPHENOLATE SODIUM [Suspect]
     Active Substance: MYCOPHENOLATE SODIUM
     Indication: CHRONIC GRAFT VERSUS HOST DISEASE IN LIVER
  2. MYCOPHENOLATE SODIUM [Suspect]
     Active Substance: MYCOPHENOLATE SODIUM
     Indication: CHRONIC GRAFT VERSUS HOST DISEASE IN INTESTINE
  3. PREDNISONE. [Suspect]
     Active Substance: PREDNISONE
     Indication: GRAFT VERSUS HOST DISEASE IN LUNG
     Route: 065
  4. AZATHIOPRINE. [Suspect]
     Active Substance: AZATHIOPRINE
     Indication: CHRONIC GRAFT VERSUS HOST DISEASE IN LIVER
  5. CICLOSPORIN [Suspect]
     Active Substance: CYCLOSPORINE
     Indication: PROPHYLAXIS AGAINST GRAFT VERSUS HOST DISEASE
     Route: 065
  6. TACROLIMUS. [Suspect]
     Active Substance: TACROLIMUS
     Indication: CHRONIC GRAFT VERSUS HOST DISEASE IN SKIN
     Route: 065
  7. MYCOPHENOLATE SODIUM [Suspect]
     Active Substance: MYCOPHENOLATE SODIUM
     Indication: GRAFT VERSUS HOST DISEASE IN LUNG
     Route: 065
  8. AZATHIOPRINE. [Suspect]
     Active Substance: AZATHIOPRINE
     Indication: CHRONIC GRAFT VERSUS HOST DISEASE IN INTESTINE
  9. MYCOPHENOLIC ACID. [Suspect]
     Active Substance: MYCOPHENOLIC ACID
     Indication: CHRONIC GRAFT VERSUS HOST DISEASE IN INTESTINE
     Route: 065
  10. TACROLIMUS. [Suspect]
     Active Substance: TACROLIMUS
     Indication: CHRONIC GRAFT VERSUS HOST DISEASE IN LIVER
  11. AZATHIOPRINE. [Suspect]
     Active Substance: AZATHIOPRINE
     Indication: CHRONIC GRAFT VERSUS HOST DISEASE IN SKIN
     Route: 065
  12. PREDNISONE. [Suspect]
     Active Substance: PREDNISONE
     Indication: CHRONIC GRAFT VERSUS HOST DISEASE IN SKIN
     Dosage: 40 MILLIGRAM DAILY;
     Route: 065
  13. IMMUNOGLOBULINS [Concomitant]
     Indication: HYPOGAMMAGLOBULINAEMIA
     Route: 042
  14. MYCOPHENOLATE SODIUM [Suspect]
     Active Substance: MYCOPHENOLATE SODIUM
     Indication: CHRONIC GRAFT VERSUS HOST DISEASE IN SKIN
  15. PREDNISONE. [Suspect]
     Active Substance: PREDNISONE
     Indication: CHRONIC GRAFT VERSUS HOST DISEASE IN INTESTINE
  16. ALEMTUZUMAB [Suspect]
     Active Substance: ALEMTUZUMAB
     Indication: PROPHYLAXIS AGAINST GRAFT VERSUS HOST DISEASE
     Route: 042
  17. TACROLIMUS. [Suspect]
     Active Substance: TACROLIMUS
     Indication: CHRONIC GRAFT VERSUS HOST DISEASE IN INTESTINE

REACTIONS (14)
  - Dysgraphia [Recovered/Resolved]
  - Chronic graft versus host disease in liver [Recovered/Resolved]
  - Chronic graft versus host disease in skin [Recovered/Resolved]
  - Flat affect [Recovered/Resolved]
  - Graft versus host disease in lung [Recovered/Resolved]
  - Impulsive behaviour [Recovered/Resolved]
  - Aphasia [Recovered/Resolved]
  - Central nervous system lesion [Recovered/Resolved]
  - Chronic graft versus host disease in intestine [Recovered/Resolved]
  - Cognitive disorder [Recovered/Resolved]
  - JC virus infection [Recovered/Resolved]
  - Hyporesponsive to stimuli [Recovered/Resolved]
  - Personality change [Recovered/Resolved]
  - Progressive multifocal leukoencephalopathy [Recovered/Resolved]
